FAERS Safety Report 14958587 (Version 1)
Quarter: 2018Q2

REPORT INFORMATION
  Report Type: Spontaneous
  Country: CN (occurrence: CN)
  Receive Date: 20180531
  Receipt Date: 20180531
  Transmission Date: 20180711
  Serious: Yes (Other)
  Sender: FDA-Public Use
  Company Number: CN-009507513-1805CHN012678

PATIENT
  Age: 59 Year
  Sex: Male
  Weight: 60 kg

DRUGS (4)
  1. PYRIDOXINE [Suspect]
     Active Substance: PYRIDOXINE
     Indication: LUMBAR SPINAL STENOSIS
     Dosage: 0.1 MG, QD
     Route: 008
     Dates: start: 20180308, end: 20180308
  2. LIDOCAINE HYDROCHLORIDE. [Concomitant]
     Active Substance: LIDOCAINE HYDROCHLORIDE
     Indication: SPINAL ANAESTHESIA
     Dosage: 0.1 G, QD
     Route: 008
     Dates: start: 20180308, end: 20180308
  3. BETAMETHASONE SODIUM PHOSPHATE [Suspect]
     Active Substance: BETAMETHASONE SODIUM PHOSPHATE
     Indication: LUMBAR SPINAL STENOSIS
     Dosage: 7 MG, QD
     Route: 008
     Dates: start: 20180308, end: 20180308
  4. CYANOCOBALAMIN. [Suspect]
     Active Substance: CYANOCOBALAMIN
     Indication: LUMBAR SPINAL STENOSIS
     Dosage: 0.5 MG, QD
     Route: 008
     Dates: start: 20180308, end: 20180308

REACTIONS (4)
  - Anaphylactic shock [Recovered/Resolved]
  - Chest discomfort [Recovered/Resolved]
  - Irritability [Recovered/Resolved]
  - Abdominal pain [Recovered/Resolved]

NARRATIVE: CASE EVENT DATE: 20180308
